FAERS Safety Report 8462058-2 (Version None)
Quarter: 2012Q2

REPORT INFORMATION
  Report Type: 
  Country: None (occurrence: None)
  Receive Date: 20120625
  Receipt Date: 20120619
  Transmission Date: 20120825
  Serious: Yes (Other)
  Sender: FDA-Public Use
  Company Number: NL-PFIZER INC-2012147970

PATIENT
  Age: 1 Year
  Sex: Female
  Weight: 10 kg

DRUGS (3)
  1. RAPAMUNE [Suspect]
     Indication: KAPOSI'S SARCOMA
     Dosage: 0.4 MG, 2X/DAY
     Dates: start: 20120228
  2. COTRIM [Concomitant]
     Dosage: 192 MG, 1X/DAY
  3. TRAMADOL HYDROCHLORIDE [Suspect]
     Indication: PAIN
     Dosage: 20 MG, 3X/DAY
     Dates: start: 20120202

REACTIONS (1)
  - BLOOD ALKALINE PHOSPHATASE INCREASED [None]
